FAERS Safety Report 5467118-6 (Version None)
Quarter: 2007Q3

REPORT INFORMATION
  Report Type: 
  Country: None (occurrence: None)
  Receive Date: 20070921
  Receipt Date: 20070921
  Transmission Date: 20080115
  Serious: Yes (Other)
  Sender: FDA-Public Use
  Company Number: None

PATIENT
  Age: 95 Year
  Sex: Female
  Weight: 54.4316 kg

DRUGS (1)
  1. AMBIEN [Suspect]
     Indication: INSOMNIA
     Dosage: 10 MG ONCE PER DAY AT BEDTIME
     Dates: start: 20050110, end: 20070919

REACTIONS (4)
  - ABNORMAL SLEEP-RELATED EVENT [None]
  - AMNESIA [None]
  - HALLUCINATION, VISUAL [None]
  - SOMNAMBULISM [None]
